FAERS Safety Report 24820262 (Version 1)
Quarter: 2025Q1

REPORT INFORMATION
  Report Type: Spontaneous
  Country: US (occurrence: US)
  Receive Date: 20250108
  Receipt Date: 20250108
  Transmission Date: 20250409
  Serious: No
  Sender: FERRING
  Company Number: US-FERRINGPH-2024FE06219

PATIENT

DRUGS (1)
  1. ADSTILADRIN [Suspect]
     Active Substance: NADOFARAGENE FIRADENOVEC-VNCG
     Indication: Product used for unknown indication
     Route: 065
     Dates: start: 20241028

REACTIONS (7)
  - Pain [Not Recovered/Not Resolved]
  - Hyperhidrosis [Not Recovered/Not Resolved]
  - Renal pain [Not Recovered/Not Resolved]
  - Pyrexia [Not Recovered/Not Resolved]
  - Chills [Not Recovered/Not Resolved]
  - Bladder spasm [Unknown]
  - Instillation site discharge [Unknown]

NARRATIVE: CASE EVENT DATE: 20241028
